FAERS Safety Report 20377380 (Version 3)
Quarter: 2023Q1

REPORT INFORMATION
  Report Type: Spontaneous
  Country: CA (occurrence: CA)
  Receive Date: 20220126
  Receipt Date: 20230209
  Transmission Date: 20230417
  Serious: Yes (Other)
  Sender: FDA-Public Use
  Company Number: CA-SAMSUNG BIOEPIS-SB-2022-01529

PATIENT
  Age: 36 Year
  Sex: Male
  Weight: 68 kg

DRUGS (4)
  1. INFLIXIMAB [Suspect]
     Active Substance: INFLIXIMAB
     Indication: Colitis ulcerative
     Route: 042
  2. INFLIXIMAB [Suspect]
     Active Substance: INFLIXIMAB
     Indication: Crohn^s disease
     Route: 042
  3. PREDNISONE [Concomitant]
     Active Substance: PREDNISONE
     Indication: Immunosuppressant drug therapy
     Route: 048
  4. AZATHIOPRINE [Concomitant]
     Active Substance: AZATHIOPRINE
     Indication: Crohn^s disease
     Route: 048

REACTIONS (21)
  - Joint stiffness [Recovered/Resolved]
  - Limb discomfort [Recovered/Resolved]
  - Lymphadenopathy [Recovered/Resolved]
  - Myalgia [Recovered/Resolved]
  - Nodule [Recovered/Resolved]
  - Pruritus [Recovered/Resolved]
  - Rash erythematous [Recovered/Resolved]
  - Skin mass [Recovered/Resolved]
  - Arthralgia [Recovered/Resolved]
  - Dysphagia [Recovered/Resolved]
  - Faecal calprotectin increased [Recovered/Resolved]
  - Hyperaesthesia [Recovered/Resolved]
  - Peripheral swelling [Recovered/Resolved]
  - Musculoskeletal stiffness [Recovered/Resolved]
  - Loss of personal independence in daily activities [Recovered/Resolved]
  - Mood altered [Recovered/Resolved]
  - Drug specific antibody present [Recovered/Resolved]
  - Drug level below therapeutic [Recovered/Resolved]
  - Drug level decreased [Recovered/Resolved]
  - Intentional product use issue [Recovered/Resolved]
  - Off label use [Recovered/Resolved]
